FAERS Safety Report 24083630 (Version 4)
Quarter: 2025Q1

REPORT INFORMATION
  Report Type: Report from Study
  Country: CA (occurrence: CA)
  Receive Date: 20240712
  Receipt Date: 20250315
  Transmission Date: 20250409
  Serious: Yes (Disabling, Other)
  Sender: CELLTRION
  Company Number: CA-CELLTRION INC.-2024CA016288

PATIENT

DRUGS (2)
  1. ADALIMUMAB-AATY [Suspect]
     Active Substance: ADALIMUMAB-AATY
     Indication: Hidradenitis
     Dosage: 40 MG EVERY 7 DATS
     Route: 058
     Dates: start: 20240526
  2. ADALIMUMAB-AATY [Suspect]
     Active Substance: ADALIMUMAB-AATY
     Dosage: 40 MG EVERY 7 DATS
     Route: 058
     Dates: start: 20240630

REACTIONS (13)
  - Decreased immune responsiveness [Unknown]
  - Pilonidal disease [Unknown]
  - Cystitis [Recovered/Resolved]
  - Gastroenteritis viral [Recovered/Resolved]
  - Clostridium difficile infection [Recovered/Resolved]
  - Cold sweat [Unknown]
  - Oropharyngeal pain [Unknown]
  - Productive cough [Not Recovered/Not Resolved]
  - Influenza [Unknown]
  - Cough [Recovered/Resolved]
  - Hyperhidrosis [Unknown]
  - Product leakage [Unknown]
  - Intentional dose omission [Unknown]

NARRATIVE: CASE EVENT DATE: 20240626
